FAERS Safety Report 20680424 (Version 2)
Quarter: 2022Q2

REPORT INFORMATION
  Report Type: Spontaneous
  Country: US (occurrence: None)
  Receive Date: 20220406
  Receipt Date: 20220505
  Transmission Date: 20220720
  Serious: No
  Sender: FDA-Public Use
  Company Number: 2022A104229

PATIENT
  Sex: Female
  Weight: 115.7 kg

DRUGS (8)
  1. BREZTRI [Suspect]
     Active Substance: BUDESONIDE\FORMOTEROL\GLYCOPYRROLATE
     Indication: Chronic obstructive pulmonary disease
     Dosage: 160MCG/9MCG/4.8MCG
     Route: 055
  2. CITALOPRAM [Concomitant]
     Active Substance: CITALOPRAM HYDROBROMIDE
     Route: 065
  3. CITALOPRAM [Concomitant]
     Active Substance: CITALOPRAM HYDROBROMIDE
     Route: 065
  4. ADDERALL [Concomitant]
     Active Substance: AMPHETAMINE ASPARTATE\AMPHETAMINE SULFATE\DEXTROAMPHETAMINE SACCHARATE\DEXTROAMPHETAMINE SULFATE
     Route: 065
  5. SINGULAIR [Concomitant]
     Active Substance: MONTELUKAST SODIUM
     Route: 065
  6. LISINOPRIL [Concomitant]
     Active Substance: LISINOPRIL
     Route: 065
  7. DEPLIN [Concomitant]
     Active Substance: LEVOMEFOLATE CALCIUM
     Route: 065
  8. ALPRAZOLAM [Concomitant]
     Active Substance: ALPRAZOLAM
     Route: 065

REACTIONS (5)
  - Dyspnoea [Unknown]
  - Emphysema [Unknown]
  - Mental disorder [Unknown]
  - Ligament sprain [Unknown]
  - Incorrect dose administered by device [Unknown]
